FAERS Safety Report 5740427-9 (Version None)
Quarter: 2008Q2

REPORT INFORMATION
  Report Type: 
  Country: None (occurrence: None)
  Receive Date: 20080516
  Receipt Date: 20080515
  Transmission Date: 20081010
  Serious: Yes (Other)
  Sender: FDA-Public Use
  Company Number: A0728148A

PATIENT
  Sex: Female

DRUGS (1)
  1. NICORETTE [Suspect]
     Indication: DRUG USE FOR UNKNOWN INDICATION
     Route: 002
     Dates: start: 20000101

REACTIONS (5)
  - DEPENDENCE [None]
  - DISTURBANCE IN ATTENTION [None]
  - DIZZINESS [None]
  - MENTAL IMPAIRMENT [None]
  - OVERDOSE [None]
